FAERS Safety Report 13961938 (Version 1)
Quarter: 2017Q3

REPORT INFORMATION
  Report Type: Spontaneous
  Country: US (occurrence: US)
  Receive Date: 20170912
  Receipt Date: 20170912
  Transmission Date: 20171128
  Serious: Yes (Life-Threatening, Other)
  Sender: FDA-Public Use
  Company Number: US-MYLANLABS-2017M1056565

PATIENT
  Age: 42 Year
  Sex: Female

DRUGS (2)
  1. CEFALEXIN [Suspect]
     Active Substance: CEPHALEXIN
     Indication: CELLULITIS ORBITAL
     Route: 065
  2. EPINEPHRINE. [Suspect]
     Active Substance: EPINEPHRINE
     Indication: ANAPHYLACTIC REACTION
     Dosage: 0.3MG OF 1:1000 EPINEPHRINE
     Route: 030

REACTIONS (3)
  - Syncope [Unknown]
  - Anaphylactic reaction [Unknown]
  - Cerebral haemorrhage [Unknown]
